FAERS Safety Report 8603347 (Version 4)
Quarter: 2012Q4

REPORT INFORMATION
  Report Type: 
  Country: US (occurrence: US)
  Receive Date: 20120607
  Receipt Date: 20121031
  Transmission Date: 20130627
  Serious: Yes (Other)
  Sender: FDA-Public Use
  Company Number: US-ASTRAZENECA-2012SE35729

PATIENT
  Age: 63 Year
  Sex: Female

DRUGS (10)
  1. METOPROLOL [Suspect]
     Indication: HYPERTENSION
     Dosage: GENERIC
     Route: 048
  2. TOPROL XL [Suspect]
     Indication: HEART RATE IRREGULAR
     Route: 048
     Dates: start: 2002, end: 2006
  3. TOPROL XL [Suspect]
     Indication: HYPERTENSION
     Route: 048
     Dates: start: 2002, end: 2006
  4. TOPROL XL [Suspect]
     Indication: HEART RATE IRREGULAR
     Dosage: GENERIC
     Route: 048
     Dates: start: 2006, end: 2011
  5. TOPROL XL [Suspect]
     Indication: HYPERTENSION
     Dosage: GENERIC
     Route: 048
     Dates: start: 2006, end: 2011
  6. TOPROL XL [Suspect]
     Indication: HEART RATE IRREGULAR
     Route: 048
  7. TOPROL XL [Suspect]
     Indication: HYPERTENSION
     Route: 048
  8. ZOMIG [Suspect]
     Indication: MIGRAINE
     Route: 048
     Dates: start: 2000
  9. ZOMIG [Suspect]
     Indication: MIGRAINE
     Route: 048
     Dates: start: 2001
  10. DILTIAZEM [Suspect]
     Route: 065

REACTIONS (12)
  - Breast cancer [Unknown]
  - Hypertension [Unknown]
  - Atrial fibrillation [Unknown]
  - Migraine [Unknown]
  - Poor quality sleep [Unknown]
  - Back pain [Unknown]
  - Malaise [Unknown]
  - Tremor [Unknown]
  - Cardiac disorder [Unknown]
  - Insomnia [Unknown]
  - Drug ineffective [Unknown]
  - Intentional drug misuse [Unknown]
